FAERS Safety Report 25882994 (Version 2)
Quarter: 2025Q4

REPORT INFORMATION
  Report Type: Spontaneous
  Country: US (occurrence: US)
  Receive Date: 20251006
  Receipt Date: 20251112
  Transmission Date: 20260117
  Serious: No
  Sender: BIOVITRUM
  Company Number: US-BIOVITRUM-2025-US-013402

PATIENT
  Age: 71 Year
  Sex: Male

DRUGS (7)
  1. VONJO [Suspect]
     Active Substance: PACRITINIB
     Indication: Myelofibrosis
     Dosage: TWICE DAILY
     Route: 048
     Dates: start: 20250418
  2. MELATONIN/CVS MELATONIN GUMMIES [Concomitant]
     Indication: Product used for unknown indication
  3. LIPITOR [Concomitant]
     Active Substance: ATORVASTATIN CALCIUM
     Indication: Product used for unknown indication
  4. TYLENOL/TYLENOL PM EXTRA STRENGTH [Concomitant]
     Indication: Product used for unknown indication
  5. XYZAL/XYZAL ALLERGY [Concomitant]
     Indication: Product used for unknown indication
  6. ADVIL [Concomitant]
     Active Substance: IBUPROFEN
     Indication: Product used for unknown indication
  7. COMPOUND W [Concomitant]
     Active Substance: SALICYLIC ACID
     Indication: Product used for unknown indication

REACTIONS (4)
  - Fatigue [Unknown]
  - Brain fog [Unknown]
  - Ear inflammation [Unknown]
  - Splenomegaly [Unknown]
